FAERS Safety Report 4740637-3 (Version None)
Quarter: 2005Q3

REPORT INFORMATION
  Report Type: 
  Country: None (occurrence: None)
  Receive Date: 20050801
  Receipt Date: 20050406
  Transmission Date: 20060218
  Serious: No
  Sender: FDA-Public Use
  Company Number: 800334

PATIENT
  Age: 68 Year
  Sex: Male
  Weight: 89.8576 kg

DRUGS (3)
  1. EXTRANEAL [Suspect]
     Dosage: 2 L; EVERY DAY IP
     Route: 033
     Dates: start: 20050302, end: 20050325
  2. DIANEAL LO/CAL 2.5 [Concomitant]
  3. DIANEAL 4.25 [Concomitant]

REACTIONS (1)
  - DERMATITIS EXFOLIATIVE [None]
